FAERS Safety Report 7551467-1 (Version None)
Quarter: 2011Q2

REPORT INFORMATION
  Report Type: 
  Country: None (occurrence: None)
  Receive Date: 20110616
  Receipt Date: 20110603
  Transmission Date: 20111010
  Serious: Yes (Hospitalization, Other)
  Sender: FDA-Public Use
  Company Number: US-ROCHE-775742

PATIENT
  Sex: Male
  Weight: 17.1 kg

DRUGS (3)
  1. RANITIDINE [Concomitant]
  2. CAPECITABINE [Suspect]
     Dosage: TEMPORARILY INTERRUPTED.
     Route: 048
     Dates: end: 20110528
  3. CAPECITABINE [Suspect]
     Indication: BRAIN STEM GLIOMA
     Dosage: DOSAGE FORM:RDT.
     Route: 048
     Dates: start: 20110301

REACTIONS (4)
  - CEREBRAL HAEMORRHAGE [None]
  - SOMNOLENCE [None]
  - RADIATION NECROSIS [None]
  - CENTRAL NERVOUS SYSTEM NECROSIS [None]
